FAERS Safety Report 18992639 (Version 3)
Quarter: 2021Q2

REPORT INFORMATION
  Report Type: Spontaneous
  Country: BR (occurrence: BR)
  Receive Date: 20210310
  Receipt Date: 20210417
  Transmission Date: 20210717
  Serious: Yes (Other)
  Sender: FDA-Public Use
  Company Number: NVSC2021BR045919

PATIENT
  Sex: Male

DRUGS (1)
  1. ZOLPIDEM [Suspect]
     Active Substance: ZOLPIDEM TARTRATE
     Indication: PRODUCT USED FOR UNKNOWN INDICATION
     Dosage: 20 DF
     Route: 065

REACTIONS (8)
  - Illness [Unknown]
  - Drug ineffective [Unknown]
  - Neoplasm malignant [Unknown]
  - General physical health deterioration [Unknown]
  - Incorrect dose administered [Unknown]
  - Insomnia [Unknown]
  - Drug dependence [Unknown]
  - Suspected counterfeit product [Unknown]
